FAERS Safety Report 8792102 (Version 1)
Quarter: 2012Q4

REPORT INFORMATION
  Report Type: Report from Study
  Country: US (occurrence: US)
  Receive Date: 20120918
  Receipt Date: 20120918
  Transmission Date: 20130627
  Serious: Yes (Hospitalization, Other)
  Sender: FDA-Public Use
  Company Number: US-GENZYME-MOZO-1000746

PATIENT
  Age: 74 Year
  Sex: Female
  Weight: 53.7 kg

DRUGS (2)
  1. MOZOBIL [Suspect]
     Indication: CHRONIC LYMPHOCYTIC LEUKAEMIA
     Dosage: UNK, MWF
     Route: 065
     Dates: start: 20120606, end: 20120820
  2. REVLIMID [Suspect]
     Indication: CHRONIC LYMPHOCYTIC LEUKAEMIA
     Dosage: 10 mg, qd
     Route: 065
     Dates: start: 20120606, end: 20120827

REACTIONS (9)
  - Neutropenia [Unknown]
  - Pyrexia [Unknown]
  - Feeling abnormal [Unknown]
  - Hypoventilation [Unknown]
  - Electrocardiogram abnormal [Unknown]
  - Lung disorder [Unknown]
  - Lymphadenopathy [Unknown]
  - Thrombocytopenia [Unknown]
  - Chest pain [Unknown]
